FAERS Safety Report 10155651 (Version 1)
Quarter: 2014Q2

REPORT INFORMATION
  Report Type: Spontaneous
  Country: US (occurrence: US)
  Receive Date: 20140506
  Receipt Date: 20140506
  Transmission Date: 20141212
  Serious: Yes (Other)
  Sender: FDA-Public Use
  Company Number: US-GLAXOSMITHKLINE-A1071229A

PATIENT
  Age: 70 Year
  Sex: Female

DRUGS (6)
  1. ADVAIR [Suspect]
     Indication: ASTHMA
     Dosage: 1PUFF PER DAY
     Route: 055
  2. NORVASC [Concomitant]
  3. THYROID MEDICATION [Concomitant]
  4. DICLOFENAC [Concomitant]
  5. BABY ASPIRIN [Concomitant]
  6. OMEPRAZOLE [Concomitant]

REACTIONS (11)
  - Barrett^s oesophagus [Recovering/Resolving]
  - Eating disorder [Recovering/Resolving]
  - Choking [Recovering/Resolving]
  - Oesophageal dilatation [Recovering/Resolving]
  - Foaming at mouth [Recovering/Resolving]
  - Dysphagia [Recovering/Resolving]
  - Pain [Recovering/Resolving]
  - Speech disorder [Recovering/Resolving]
  - Feeling abnormal [Recovering/Resolving]
  - Dyspnoea [Recovering/Resolving]
  - Off label use [Unknown]
